FAERS Safety Report 4553244-2 (Version None)
Quarter: 2005Q1

REPORT INFORMATION
  Report Type: 
  Country: None (occurrence: None)
  Receive Date: 20050113
  Receipt Date: 20050105
  Transmission Date: 20050727
  Serious: Yes (Hospitalization)
  Sender: FDA-Public Use
  Company Number: 2004115060

PATIENT
  Age: 67 Year
  Sex: Male

DRUGS (2)
  1. VANCOMYCIN [Suspect]
     Indication: ILL-DEFINED DISORDER
  2. LINEZOLID TABLET (LINEZOLID) [Suspect]

REACTIONS (2)
  - MONOPLEGIA [None]
  - NO THERAPEUTIC RESPONSE [None]
